FAERS Safety Report 5131225-8 (Version None)
Quarter: 2006Q4

REPORT INFORMATION
  Report Type: 
  Country: None (occurrence: None)
  Receive Date: 20061017
  Receipt Date: 20061017
  Transmission Date: 20070319
  Serious: Yes (Hospitalization)
  Sender: FDA-Public Use
  Company Number: None

PATIENT
  Age: 37 Year
  Sex: Male
  Weight: 108 kg

DRUGS (1)
  1. BOTULINUM TOXIN A 100U [Suspect]
     Indication: MIGRAINE
     Dosage: 100U ONCE IM
     Route: 030

REACTIONS (12)
  - CONVULSION [None]
  - DEPRESSED LEVEL OF CONSCIOUSNESS [None]
  - DIZZINESS [None]
  - FALL [None]
  - HEADACHE [None]
  - HYPOREFLEXIA [None]
  - ILL-DEFINED DISORDER [None]
  - MENTAL STATUS CHANGES [None]
  - MYALGIA [None]
  - PAIN [None]
  - SINUS BRADYCARDIA [None]
  - SYNCOPE [None]
